FAERS Safety Report 6422234-7 (Version None)
Quarter: 2009Q4

REPORT INFORMATION
  Report Type: 
  Country: None (occurrence: None)
  Receive Date: 20091029
  Receipt Date: 20091029
  Transmission Date: 20100525
  Serious: Yes (Disabling)
  Sender: FDA-Public Use
  Company Number: None

PATIENT
  Sex: Female
  Weight: 58.9676 kg

DRUGS (1)
  1. LYRICA [Suspect]
     Indication: FIBROMYALGIA
     Dosage: 50 MGM Q DAY PO
     Route: 048
     Dates: start: 20080515

REACTIONS (3)
  - EYE PAIN [None]
  - VISION BLURRED [None]
  - VISUAL ACUITY REDUCED [None]
